FAERS Safety Report 12732363 (Version 1)
Quarter: 2016Q3

REPORT INFORMATION
  Report Type: Report from Study
  Country: EG (occurrence: EG)
  Receive Date: 20160912
  Receipt Date: 20160912
  Transmission Date: 20161109
  Serious: Yes (Other)
  Sender: FDA-Public Use
  Company Number: PHHY2016EG124231

PATIENT
  Age: 76 Year
  Sex: Male

DRUGS (1)
  1. ONBREZ BREEZHALER [Suspect]
     Active Substance: INDACATEROL
     Indication: ASTHMA
     Dosage: UNK
     Route: 065
     Dates: start: 201603

REACTIONS (3)
  - Choking [Recovered/Resolved]
  - Product use issue [Unknown]
  - Cough [Recovered/Resolved]
